FAERS Safety Report 21149511 (Version 1)
Quarter: 2022Q3

REPORT INFORMATION
  Report Type: Spontaneous
  Country: GB (occurrence: GB)
  Receive Date: 20220729
  Receipt Date: 20220729
  Transmission Date: 20221027
  Serious: Yes (Other)
  Sender: FDA-Public Use
  Company Number: None

PATIENT
  Age: 65 Year
  Sex: Female
  Weight: 69 kg

DRUGS (7)
  1. LEVOFLOXACIN [Suspect]
     Active Substance: LEVOFLOXACIN
     Indication: Helicobacter infection
     Dosage: 250 MILLIGRAM, BID (1 TWICE A DAY FOR 7 DAYS 250MG TABLETS)
     Route: 065
     Dates: start: 20220714, end: 20220722
  2. BACLOFEN [Concomitant]
     Active Substance: BACLOFEN
     Dosage: (HALF A TABLET THREE TIMES A DAY)
     Route: 065
     Dates: start: 20220126
  3. CLARITHROMYCIN [Concomitant]
     Active Substance: CLARITHROMYCIN
     Dosage: UNK UNK, BID (TAKE ONE EVERY 12 HRS)
     Route: 065
     Dates: start: 20220621, end: 20220628
  4. LOSARTAN [Concomitant]
     Active Substance: LOSARTAN
     Dosage: 1 DOSAGE FORM, QD (TAKE ONE DAILY)
     Route: 065
     Dates: start: 20220126
  5. METRONIDAZOLE [Concomitant]
     Active Substance: METRONIDAZOLE
     Dosage: 1 DOSAGE FORM, BID (ONE TWICE A DAY FOR 7 DAYS )
     Route: 065
     Dates: start: 20220714, end: 20220721
  6. PANTOPRAZOLE [Concomitant]
     Active Substance: PANTOPRAZOLE
     Dosage: 1 DOSAGE FORM, QD (TAKE ONE DAILY
     Route: 065
     Dates: start: 20220126
  7. PREGABALIN [Concomitant]
     Active Substance: PREGABALIN
     Dosage: 1 DOSAGE FORM, BID (ONE TWICE DAILY )
     Route: 065
     Dates: start: 20220126

REACTIONS (2)
  - Tendonitis [Unknown]
  - Pain in extremity [Unknown]

NARRATIVE: CASE EVENT DATE: 20220722
